FAERS Safety Report 14159064 (Version 3)
Quarter: 2024Q1

REPORT INFORMATION
  Report Type: Report from Study
  Country: US (occurrence: US)
  Receive Date: 20171103
  Receipt Date: 20240306
  Transmission Date: 20240410
  Serious: No
  Sender: FDA-Public Use
  Company Number: US-PUMA BIOTECHNOLOGY, LTD.-2017US013451

PATIENT

DRUGS (9)
  1. NERLYNX [Suspect]
     Active Substance: NERATINIB
     Indication: Breast cancer
     Dosage: 6 TABLETS, DAILY
     Route: 048
     Dates: start: 20171002, end: 20171003
  2. NERLYNX [Suspect]
     Active Substance: NERATINIB
     Indication: HER2 positive breast cancer
     Dosage: 2-3 TABLETS, EVERY OTHER DAY
     Route: 048
     Dates: start: 20171104, end: 201711
  3. NERLYNX [Suspect]
     Active Substance: NERATINIB
     Dosage: 2-3 TABLETS, EVERY OTHER DAY
     Route: 048
     Dates: start: 201712, end: 201801
  4. NERLYNX [Suspect]
     Active Substance: NERATINIB
     Dosage: 120 MG, DAILY (4 TABLETS)
     Route: 048
     Dates: start: 201801, end: 201802
  5. NERLYNX [Suspect]
     Active Substance: NERATINIB
     Dosage: 160 MG, DAILY
     Route: 048
     Dates: start: 201802, end: 201802
  6. NERLYNX [Suspect]
     Active Substance: NERATINIB
     Dosage: 160 MG ONCE DAILY ALTERNATING WITH 200MG ONCE DAILY
     Route: 048
     Dates: start: 20180301, end: 2018
  7. NERLYNX [Suspect]
     Active Substance: NERATINIB
     Dosage: 2 TABLETS, DAILY
     Route: 048
  8. NERLYNX [Suspect]
     Active Substance: NERATINIB
     Dosage: 6 TABLETS, DAILY
     Route: 048
  9. IMODIUM [Concomitant]
     Active Substance: LOPERAMIDE HYDROCHLORIDE
     Indication: Prophylaxis against diarrhoea

REACTIONS (16)
  - Paraesthesia [Unknown]
  - Saliva altered [Unknown]
  - Taste disorder [Unknown]
  - Constipation [Unknown]
  - Gastrooesophageal reflux disease [Unknown]
  - Hot flush [Unknown]
  - Nasal mucosal ulcer [Unknown]
  - Dry eye [Unknown]
  - Eructation [Unknown]
  - Abdominal pain [Recovered/Resolved]
  - Diarrhoea [Recovering/Resolving]
  - Nausea [Recovering/Resolving]
  - Vomiting [Recovered/Resolved]
  - Rash [Recovered/Resolved]
  - Dyspepsia [Unknown]
  - Fatigue [Unknown]

NARRATIVE: CASE EVENT DATE: 20171002
